FAERS Safety Report 10465901 (Version 3)
Quarter: 2014Q4

REPORT INFORMATION
  Report Type: Spontaneous
  Country: JP (occurrence: JP)
  Receive Date: 20140922
  Receipt Date: 20141010
  Transmission Date: 20150528
  Serious: Yes (Hospitalization)
  Sender: FDA-Public Use
  Company Number: JP-009507513-1409JPN006611

PATIENT
  Age: 38 Year
  Sex: Female

DRUGS (4)
  1. GONADOTROPIN, CHORIONIC [Concomitant]
     Active Substance: CHORIOGONADOTROPIN ALFA
     Dosage: 1 (THOUSAND-MILLION UNIT)
     Route: 030
  2. GONADOTROPIN, CHORIONIC [Concomitant]
     Active Substance: CHORIOGONADOTROPIN ALFA
     Indication: PROGESTIN REPLACEMENT THERAPY
     Dosage: 1 (THOUSAND-MILLION UNIT)
     Route: 030
  3. HYDROXYPROGESTERONE CAPROATE [Concomitant]
     Active Substance: HYDROXYPROGESTERONE CAPROATE
     Indication: PROGESTIN REPLACEMENT THERAPY
     Dosage: DAILY DOSAGE UNKNOWN
     Route: 065
  4. PREGNYL [Suspect]
     Active Substance: CHORIOGONADOTROPIN ALFA
     Indication: PROGESTIN REPLACEMENT THERAPY
     Dosage: 1000 UNITS (ALSO REPORTED AS 10 (THOUSAND-MILLION UNIT)),QD , 3 DAYS AFTER EGG COLLECTION
     Route: 030

REACTIONS (3)
  - Drug eruption [Recovering/Resolving]
  - Swelling [Recovering/Resolving]
  - Generalised erythema [Recovering/Resolving]
